FAERS Safety Report 12441776 (Version 1)
Quarter: 2016Q2

REPORT INFORMATION
  Report Type: Spontaneous
  Country: AU (occurrence: AU)
  Receive Date: 20160607
  Receipt Date: 20160607
  Transmission Date: 20160815
  Serious: Yes (Hospitalization, Other)
  Sender: FDA-Public Use
  Company Number: AU-APOTEX-2016AP008893

PATIENT
  Age: 37 Year
  Sex: Female
  Weight: 54 kg

DRUGS (12)
  1. ROPIVACAINE [Suspect]
     Active Substance: ROPIVACAINE
     Indication: LOCAL ANAESTHESIA
     Dosage: 20ML OF 1% ROPIVACAINE (200MG, 3.7MG/KG) AND ADRENALIN (1MG) DILUTED IN 200ML NORMAL SALINE
     Route: 050
  2. NORMAL SALINE [Concomitant]
     Active Substance: SODIUM CHLORIDE
     Indication: PRODUCT USED FOR UNKNOWN INDICATION
     Dosage: 20ML OF 1% ROPIVACAINE(200MG, 3.7MG/KG) AND ADRENALIN (1MG) DILUTED IN 200ML NORMAL SALINE
     Route: 050
  3. MIDAZOLAM [Suspect]
     Active Substance: MIDAZOLAM\MIDAZOLAM HYDROCHLORIDE
     Indication: SEDATIVE THERAPY
     Dosage: 3 MG, UNK
     Route: 065
  4. MIDAZOLAM [Suspect]
     Active Substance: MIDAZOLAM\MIDAZOLAM HYDROCHLORIDE
     Dosage: TOTAL OF 320 ?G INTRAVENOUS FENTANYL, PROPOFOL, MIDAZOLAM AND DEXMEDETOMIDINEUNK
     Route: 042
  5. DEXMEDETOMIDINE. [Suspect]
     Active Substance: DEXMEDETOMIDINE
     Indication: SEDATIVE THERAPY
     Dosage: TOTAL OF 320 ?G INTRAVENOUS FENTANYL, PROPOFOL, MIDAZOLAM AND DEXMEDETOMIDINE
     Route: 042
  6. FENTANYL. [Suspect]
     Active Substance: FENTANYL
     Indication: SEDATIVE THERAPY
     Dosage: TOTAL OF 320 ?G INTRAVENOUS FENTANYL, PROPOFOL, MIDAZOLAM AND DEXMEDETOMIDINE
     Route: 042
  7. CEFAZOLIN [Concomitant]
     Active Substance: CEFAZOLIN
     Indication: PRODUCT USED FOR UNKNOWN INDICATION
     Dosage: UNK
     Route: 065
  8. ONDANSETRON [Concomitant]
     Active Substance: ONDANSETRON
     Indication: PRODUCT USED FOR UNKNOWN INDICATION
     Dosage: UNK
     Route: 065
  9. DEXAMETHASONE. [Concomitant]
     Active Substance: DEXAMETHASONE
     Indication: PRODUCT USED FOR UNKNOWN INDICATION
     Dosage: 8 MG, UNK
     Route: 042
  10. PROPOFOL. [Suspect]
     Active Substance: PROPOFOL
     Indication: SEDATIVE THERAPY
     Dosage: TOTAL OF 320 ?G INTRAVENOUS FENTANYL, PROPOFOL, MIDAZOLAM AND DEXMEDETOMIDINE
     Route: 042
  11. ADRENALINE                         /00003901/ [Concomitant]
     Active Substance: EPINEPHRINE
     Indication: PRODUCT USED FOR UNKNOWN INDICATION
     Dosage: 20ML OF 1% ROPIVACAINE(200MG, 3.7MG/KG) AND ADRENALIN (1MG) DILUTED IN 200ML NORMAL SALINE
     Route: 050
  12. PARACETAMOL [Concomitant]
     Active Substance: ACETAMINOPHEN
     Indication: PRODUCT USED FOR UNKNOWN INDICATION
     Dosage: 1 G, UNK
     Route: 042

REACTIONS (2)
  - Generalised tonic-clonic seizure [Recovered/Resolved]
  - Toxicity to various agents [Recovered/Resolved]
